FAERS Safety Report 21020359 (Version 1)
Quarter: 2022Q2

REPORT INFORMATION
  Report Type: Spontaneous
  Country: TR (occurrence: TR)
  Receive Date: 20220629
  Receipt Date: 20220629
  Transmission Date: 20220721
  Serious: Yes (Death, Life-Threatening, Hospitalization)
  Sender: FDA-Public Use
  Company Number: TR-STRIDES ARCOLAB LIMITED-2022SP007748

PATIENT
  Age: 23 Year
  Sex: Male

DRUGS (6)
  1. VANCOMYCIN [Suspect]
     Active Substance: VANCOMYCIN
     Indication: Staphylococcal infection
     Dosage: 2 GRAM PER DAY
     Route: 065
  2. CEFTRIAXONE [Suspect]
     Active Substance: CEFTRIAXONE
     Indication: Staphylococcal infection
     Dosage: 2 GRAM PER DAY
     Route: 065
  3. AMPICILLIN [Concomitant]
     Active Substance: AMPICILLIN
     Indication: Evidence based treatment
     Dosage: 4 GRAM PER DAY
     Route: 065
  4. GENTAMICIN [Concomitant]
     Active Substance: GENTAMICIN
     Indication: Evidence based treatment
     Dosage: 240 MILLIGRAM PER DAY
     Route: 065
  5. AMOXICILLIN [Concomitant]
     Active Substance: AMOXICILLIN
     Indication: Tooth abscess
     Dosage: UNK
     Route: 065
  6. PENICILLIN G [Concomitant]
     Active Substance: PENICILLIN G
     Indication: Tooth abscess
     Dosage: UNK
     Route: 065

REACTIONS (1)
  - Drug ineffective [Fatal]
